FAERS Safety Report 4683734-3 (Version None)
Quarter: 2005Q2

REPORT INFORMATION
  Report Type: 
  Country: None (occurrence: None)
  Receive Date: 20050607
  Receipt Date: 20050601
  Transmission Date: 20051028
  Serious: Yes (Hospitalization, Other)
  Sender: FDA-Public Use
  Company Number: PHRM2005FR01711

PATIENT
  Age: 65 Year
  Sex: Female

DRUGS (1)
  1. TRILEPTAL [Suspect]
     Indication: EPILEPSY
     Dosage: 750 MG, BID
     Route: 048
     Dates: start: 20030601, end: 20050501

REACTIONS (8)
  - ANAEMIA [None]
  - BONE MARROW DEPRESSION [None]
  - DIPLOPIA [None]
  - FALL [None]
  - HYPONATRAEMIA [None]
  - LEUKOPENIA [None]
  - PLATELET COUNT DECREASED [None]
  - URINARY TRACT INFECTION [None]
